FAERS Safety Report 6135351-6 (Version None)
Quarter: 2009Q1

REPORT INFORMATION
  Report Type: 
  Country: None (occurrence: None)
  Receive Date: 20090327
  Receipt Date: 20090317
  Transmission Date: 20090719
  Serious: Yes (Hospitalization)
  Sender: FDA-Public Use
  Company Number: FR-PFIZER INC-2009185604

PATIENT

DRUGS (5)
  1. IRINOTECAN HCL [Suspect]
     Indication: COLORECTAL CANCER
     Dosage: 380 NO UNITS PROVIDED
     Route: 042
     Dates: start: 20061023, end: 20070102
  2. MORPHINE SULFATE [Suspect]
     Dosage: UNK
  3. FLUOROURACIL [Suspect]
     Indication: COLORECTAL CANCER
     Dosage: 700 NO UNITS PROVIDED; BOLUS
     Route: 040
     Dates: start: 20061023, end: 20070102
  4. FLUOROURACIL [Suspect]
     Dosage: 3600 NO UNITS PROVIDED; CONTINUOUS
     Route: 042
     Dates: start: 20061023, end: 20070104
  5. CETUXIMAB [Suspect]
     Indication: COLORECTAL CANCER
     Dosage: 430 NO UNITS PROVIDED
     Route: 042
     Dates: start: 20061023, end: 20070108

REACTIONS (3)
  - ANOREXIA [None]
  - ASTHENIA [None]
  - GENERAL PHYSICAL HEALTH DETERIORATION [None]
